FAERS Safety Report 15575885 (Version 1)
Quarter: 2018Q4

REPORT INFORMATION
  Report Type: Other
  Country: DE (occurrence: DE)
  Receive Date: 20181101
  Receipt Date: 20181101
  Transmission Date: 20190205
  Serious: Yes (Hospitalization)
  Sender: FDA-Public Use
  Company Number: DE-MACLEODS PHARMACEUTICALS US LTD-MAC2018016894

PATIENT

DRUGS (22)
  1. NEXAVAR [Suspect]
     Active Substance: SORAFENIB
     Dosage: UNK, NO ADVERSE EVENT
     Route: 048
     Dates: start: 20080603, end: 20080604
  2. PARACETAMOL [Concomitant]
     Active Substance: ACETAMINOPHEN
     Indication: PAIN
     Dosage: 2000 MILLIGRAM, QD, TABLET
     Route: 048
     Dates: start: 20080807, end: 20080809
  3. NEXAVAR [Suspect]
     Active Substance: SORAFENIB
     Indication: PRODUCT USED FOR UNKNOWN INDICATION
     Dosage: UNK, QD, FIRST 2X2 TBL DAILY, FROM 09.07.08 ONLY, 1-0-2 TBL.
     Route: 048
     Dates: start: 20080608, end: 20080809
  4. NEXAVAR [Suspect]
     Active Substance: SORAFENIB
     Dosage: 400 MILLIGRAM, QD,
     Route: 048
     Dates: start: 20080910
  5. ALDACTONE [Concomitant]
     Active Substance: SPIRONOLACTONE
     Indication: CARDIAC FAILURE
     Dosage: 25 MILLIGRAM, QD
     Route: 048
     Dates: start: 20080601
  6. METHIZOL [Concomitant]
     Active Substance: METHIMAZOLE
     Indication: HYPERTHYROIDISM
     Dosage: 5 MILLIGRAM, QD
     Route: 048
     Dates: start: 20080201
  7. PENTALONG [Concomitant]
     Active Substance: PENTAERYTHRITOL TETRANITRATE
     Indication: CORONARY ARTERY DISEASE
     Dosage: 80 MILLIGRAM, TID, 240 MG MILLIGRAM(S) EVERY DAY
     Route: 048
     Dates: start: 20060601
  8. TOREM [Concomitant]
     Active Substance: TORSEMIDE
     Indication: CARDIAC FAILURE
     Dosage: 5 MILLIGRAM, QD
     Route: 048
     Dates: start: 20080601
  9. AMLODIPINE BESYLATE. [Suspect]
     Active Substance: AMLODIPINE BESYLATE
     Indication: HYPERTENSION
     Dosage: 10 MILLIGRAM, QD,  5 MG BID, EXACT SPECIMEN NAMES CAN NOT BE DETERMINED, TABLET
     Route: 048
     Dates: start: 20080601
  10. TAMSULOSIN [Suspect]
     Active Substance: TAMSULOSIN
     Indication: BENIGN PROSTATIC HYPERPLASIA
     Dosage: 0.4 MILLIGRAM, QD
     Route: 048
  11. AMARYL [Concomitant]
     Active Substance: GLIMEPIRIDE
     Indication: TYPE 2 DIABETES MELLITUS
     Dosage: 1 MILLIGRAM, QD
     Route: 048
     Dates: start: 20080201
  12. NEXAVAR [Suspect]
     Active Substance: SORAFENIB
     Dosage: 600 MILLIGRAM, QD, 200 MG MORINING, 400 MG EVENING
     Route: 048
     Dates: start: 20080709, end: 20080809
  13. NEXAVAR [Suspect]
     Active Substance: SORAFENIB
     Indication: METASTATIC RENAL CELL CARCINOMA
     Dosage: 200 MILLIGRAM, QD, 800 MG DAILY,
     Route: 048
     Dates: start: 20080608, end: 20080809
  14. CLOPIDOGREL [Concomitant]
     Active Substance: CLOPIDOGREL BISULFATE
     Indication: STENT PLACEMENT
     Dosage: 75 MILLIGRAM, QD
     Route: 048
     Dates: start: 20080301
  15. ACERBON ^ICI^ [Suspect]
     Active Substance: LISINOPRIL
     Indication: HYPERTENSION
     Dosage: 30 MILLIGRAM, QD,  20 MG IN THE MORNING, 10 MG IN THE EVENING
     Route: 048
     Dates: start: 1996, end: 20081027
  16. NEXAVAR [Suspect]
     Active Substance: SORAFENIB
     Dosage: 400 MILLIGRAM, QD
     Route: 048
     Dates: start: 20080608, end: 20080709
  17. ZOMETA [Suspect]
     Active Substance: ZOLEDRONIC ACID
     Indication: METASTASES TO BONE
     Dosage: 4 MILLIGRAM, EVERY 4 WEEK
     Route: 017
     Dates: start: 20080618, end: 20080716
  18. BELOC ZOK [Concomitant]
     Active Substance: METOPROLOL SUCCINATE
     Indication: ARRHYTHMIA
     Dosage: 95 MILLIGRAM, BID, 190 MG MILLIGRAM(S) EVERY DAY
     Route: 048
     Dates: start: 20001001
  19. LOCHOL [Concomitant]
     Active Substance: FLUVASTATIN SODIUM
     Indication: HYPERLIPIDAEMIA
     Dosage: 80 MILLIGRAM, QD
     Route: 048
     Dates: start: 20080601
  20. ASPIRIN. [Concomitant]
     Active Substance: ASPIRIN
     Indication: CORONARY ARTERY DISEASE
     Dosage: 10 MILLIGRAM, QD, 100 MG MILLIGRAM(S) EVERY DAY, TABLET
     Route: 048
     Dates: start: 20001101
  21. GLUCOBAY [Concomitant]
     Active Substance: ACARBOSE
     Indication: TYPE 2 DIABETES MELLITUS
     Dosage: 50 MILLIGRAM, TID, 150 MG MILLIGRAM(S) EVERY DAY
     Route: 048
     Dates: start: 1996
  22. DIGITOXIN [Concomitant]
     Active Substance: DIGITOXIN
     Indication: CARDIAC FAILURE
     Dosage: 0.01 MILLIGRAM, QD, 0.007 MILIGRAM QD,
     Route: 048
     Dates: start: 20080601

REACTIONS (15)
  - Albumin urine present [Unknown]
  - Mouth swelling [Recovered/Resolved]
  - Speech disorder [Recovered/Resolved]
  - Swollen tongue [Recovered/Resolved]
  - Dysphagia [Recovered/Resolved]
  - Haemoglobin decreased [Unknown]
  - Lip swelling [Recovered/Resolved]
  - Red blood cell sedimentation rate increased [Unknown]
  - Gamma-glutamyltransferase increased [Unknown]
  - Mouth swelling [Recovered/Resolved]
  - Dysphagia [Unknown]
  - Angioedema [Recovered/Resolved]
  - Platelet count increased [Unknown]
  - C-reactive protein increased [Unknown]
  - Blood sodium decreased [Unknown]

NARRATIVE: CASE EVENT DATE: 20080810
